FAERS Safety Report 15391816 (Version 1)
Quarter: 2018Q3

REPORT INFORMATION
  Report Type: Spontaneous
  Country: CA (occurrence: CA)
  Receive Date: 20180917
  Receipt Date: 20180917
  Transmission Date: 20181010
  Serious: Yes (Hospitalization)
  Sender: FDA-Public Use
  Company Number: CA-PFIZER INC-2018363599

PATIENT
  Age: 75 Year
  Sex: Female

DRUGS (9)
  1. IRON [Concomitant]
     Active Substance: IRON
     Dosage: 300 MG, 2X/DAY
  2. JAMP CALCIUM [Concomitant]
     Dosage: 500 MG, 2X/DAY
  3. VITAMIN E [TOCOPHEROL] [Concomitant]
     Dosage: 400 IU, 1X/DAY
  4. ATIVAN [Suspect]
     Active Substance: LORAZEPAM
     Dosage: 1 MG, 1X/DAY AT BEDTIME
  5. JAMP VITAMIN D [Concomitant]
     Dosage: 10,000 UN, 1X/DAY
  6. VITAMIN A [RETINOL] [Concomitant]
     Dosage: 4000 IU, 1X/DAY
  7. URSODIOL. [Concomitant]
     Active Substance: URSODIOL
     Dosage: 250 MG, 1X/DAY
  8. FLEXERIL [CYCLOBENZAPRINE HYDROCHLORIDE] [Concomitant]
     Dosage: AT BEDTIME
  9. DEXILANT [Concomitant]
     Active Substance: DEXLANSOPRAZOLE
     Dosage: 30 MG, 1X/DAY

REACTIONS (5)
  - Eating disorder [Unknown]
  - Diarrhoea [Unknown]
  - Vomiting [Unknown]
  - Nausea [Unknown]
  - Abdominal pain [Unknown]
